FAERS Safety Report 7660165-5 (Version None)
Quarter: 2011Q3

REPORT INFORMATION
  Report Type: 
  Country: None (occurrence: None)
  Receive Date: 20110805
  Receipt Date: 20110805
  Transmission Date: 20111222
  Serious: Yes (Hospitalization)
  Sender: FDA-Public Use
  Company Number: PHHO2009US02282

PATIENT
  Sex: Female
  Weight: 50 kg

DRUGS (10)
  1. NAMENDA [Concomitant]
  2. EXELON [Suspect]
     Dosage: NO TREATMENT
     Dates: start: 20090213, end: 20090213
  3. NO TREATMENT RECEIVED [Suspect]
     Dosage: NO TREATMENT
  4. EXELON [Suspect]
     Indication: DEMENTIA ALZHEIMER'S TYPE
     Dosage: 10 CM2/18MG
     Route: 062
     Dates: start: 20080213, end: 20090212
  5. EXELON [Suspect]
     Dosage: 15 CM2, UNK
     Route: 062
     Dates: start: 20090214
  6. CALCITRATE [Concomitant]
  7. ZYPREXA [Suspect]
     Indication: DELUSION
     Dosage: 15 MG,
     Route: 048
  8. PROZAC [Concomitant]
     Indication: ANXIETY
     Dosage: UNK
  9. ZYPREXA [Suspect]
     Dosage: 10 MG
  10. ASPIRIN [Concomitant]
     Dosage: UNK

REACTIONS (2)
  - HYPOTENSION [None]
  - ADRENAL INSUFFICIENCY [None]
